FAERS Safety Report 8888554 (Version 2)
Quarter: 2013Q3

REPORT INFORMATION
  Report Type: Spontaneous
  Country: GB (occurrence: GB)
  Receive Date: 20121106
  Receipt Date: 20130928
  Transmission Date: 20140515
  Serious: Yes (Hospitalization, Disabling, Other)
  Sender: FDA-Public Use
  Company Number: GB-ROCHE-1151698

PATIENT
  Age: 20 Year
  Sex: Male
  Weight: 60 kg

DRUGS (6)
  1. ROACCUTANE [Suspect]
     Indication: ACNE CONGLOBATA
     Dosage: DOSAGE INTERVAL: 1 DAY
     Route: 048
     Dates: start: 201202, end: 201204
  2. ROACCUTANE [Suspect]
     Route: 048
     Dates: start: 2011
  3. ROACCUTANE [Suspect]
     Route: 048
     Dates: start: 2011
  4. AMITRIPTYLINE [Concomitant]
     Route: 065
     Dates: start: 2011
  5. ERYTHROMYCIN [Concomitant]
     Indication: ACNE
     Route: 065
     Dates: start: 2011
  6. PREDNISOLONE [Concomitant]
     Indication: ACNE
     Route: 065
     Dates: start: 2011

REACTIONS (6)
  - Anxiety disorder [Not Recovered/Not Resolved]
  - Nausea [Recovered/Resolved]
  - Panic attack [Recovered/Resolved]
  - Malaise [Recovered/Resolved]
  - Malaise [Recovered/Resolved]
  - Vomiting [Recovered/Resolved]
